FAERS Safety Report 24708645 (Version 1)
Quarter: 2024Q4

REPORT INFORMATION
  Report Type: Report from Study
  Country: BR (occurrence: BR)
  Receive Date: 20241207
  Receipt Date: 20241207
  Transmission Date: 20250114
  Serious: Yes (Hospitalization, Other)
  Sender: JOHNSON AND JOHNSON
  Company Number: BR-JNJFOC-20241172892

PATIENT
  Age: 68 Year
  Sex: Female
  Weight: 75 kg

DRUGS (2)
  1. GOLIMUMAB [Suspect]
     Active Substance: GOLIMUMAB
     Indication: Rheumatoid arthritis
     Route: 058
     Dates: start: 2018, end: 2019
  2. GOLIMUMAB [Suspect]
     Active Substance: GOLIMUMAB

REACTIONS (5)
  - Femur fracture [Recovered/Resolved]
  - COVID-19 [Recovered/Resolved]
  - Rheumatoid arthritis [Not Recovered/Not Resolved]
  - Product dose omission issue [Unknown]
  - Weight increased [Recovering/Resolving]

NARRATIVE: CASE EVENT DATE: 20190101
